FAERS Safety Report 5854624-5 (Version None)
Quarter: 2008Q3

REPORT INFORMATION
  Report Type: 
  Country: None (occurrence: None)
  Receive Date: 20080822
  Receipt Date: 20071031
  Transmission Date: 20090109
  Serious: No
  Sender: FDA-Public Use
  Company Number: US-ABBOTT-07P-163-0423288-00

PATIENT
  Age: 77 Year
  Sex: Female
  Weight: 56.75 kg

DRUGS (2)
  1. SYNTHROID [Suspect]
     Indication: HYPOTHYROIDISM
     Route: 048
     Dates: start: 19610101
  2. TERIPARATIDE [Concomitant]
     Indication: OSTEOPOROSIS

REACTIONS (1)
  - BONE DENSITY DECREASED [None]
